FAERS Safety Report 6467234-6 (Version None)
Quarter: 2009Q4

REPORT INFORMATION
  Report Type: 
  Country: None (occurrence: None)
  Receive Date: 20091130
  Receipt Date: 20091117
  Transmission Date: 20100525
  Serious: Yes (Hospitalization)
  Sender: FDA-Public Use
  Company Number: 8054322

PATIENT
  Age: 51 Year
  Sex: Female

DRUGS (1)
  1. CIMZIA [Suspect]
     Indication: CROHN'S DISEASE
     Dosage: 400 MG /M SC
     Route: 058
     Dates: start: 20090615, end: 20091001

REACTIONS (6)
  - CONDITION AGGRAVATED [None]
  - CONVULSION [None]
  - CROHN'S DISEASE [None]
  - DRUG INEFFECTIVE [None]
  - FATIGUE [None]
  - PNEUMONIA [None]
